FAERS Safety Report 6692525-3 (Version None)
Quarter: 2010Q2

REPORT INFORMATION
  Report Type: 
  Country: None (occurrence: None)
  Receive Date: 20100422
  Receipt Date: 20100415
  Transmission Date: 20101027
  Serious: Yes (Hospitalization)
  Sender: FDA-Public Use
  Company Number: B0648939A

PATIENT
  Age: 52 Year
  Sex: Male

DRUGS (15)
  1. AUGMENTIN '125' [Suspect]
     Indication: ABSCESS
     Route: 048
     Dates: start: 20100101
  2. CIPROFLOXACIN HYDROCHLORIDE [Suspect]
     Indication: DRUG USE FOR UNKNOWN INDICATION
     Dosage: 250MG TWICE PER DAY
     Route: 048
     Dates: start: 20100202
  3. CLINDAMYCIN HCL [Concomitant]
     Dosage: 600MG THREE TIMES PER DAY
     Route: 048
     Dates: start: 20100202
  4. MYCOSTATIN [Concomitant]
     Dosage: 1ML FOUR TIMES PER DAY
     Route: 048
  5. PROGRAF [Concomitant]
     Dosage: 1MG TWICE PER DAY
     Route: 065
  6. AZATHIOPRINE [Concomitant]
     Dosage: 50MG PER DAY
     Route: 065
  7. ASPIRIN [Concomitant]
     Dosage: 100MG PER DAY
     Route: 048
  8. TEMGESIC [Concomitant]
     Dosage: .2MG THREE TIMES PER DAY
     Route: 048
  9. NEXIUM [Concomitant]
     Dosage: 40MG PER DAY
     Route: 048
  10. ENTECAVIR [Concomitant]
     Route: 048
  11. XANAX [Concomitant]
     Dosage: .25MG TWICE PER DAY
     Route: 048
  12. PASPERTIN [Concomitant]
     Dosage: 10MG THREE TIMES PER DAY
     Route: 048
  13. CALCIMAGON-D3 [Concomitant]
     Dosage: 1UNIT PER DAY
     Route: 048
  14. MOVICOL [Concomitant]
     Dosage: 1UNIT TWICE PER DAY
     Route: 048
  15. DAFALGAN [Concomitant]
     Dosage: 500MG FOUR TIMES PER DAY
     Route: 048

REACTIONS (3)
  - BLOOD ALKALINE PHOSPHATASE INCREASED [None]
  - CHOLESTATIC LIVER INJURY [None]
  - GAMMA-GLUTAMYLTRANSFERASE INCREASED [None]
